FAERS Safety Report 7846662-8 (Version None)
Quarter: 2011Q4

REPORT INFORMATION
  Report Type: 
  Country: None (occurrence: None)
  Receive Date: 20111025
  Receipt Date: 20111018
  Transmission Date: 20120403
  Serious: Yes (Death)
  Sender: FDA-Public Use
  Company Number: PHHY2011DE80356

PATIENT
  Age: 75 Year
  Sex: Male
  Weight: 75 kg

DRUGS (6)
  1. MADOPAR [Concomitant]
     Dosage: 125 MG, DAILY
     Route: 048
  2. EXELON [Suspect]
     Dosage: 2 DF (4.6 MG/24 HR)
     Route: 062
     Dates: start: 20110801, end: 20110801
  3. SEROQUEL [Concomitant]
     Dosage: 25 MG, DAILY
     Route: 048
  4. EXELON [Suspect]
     Indication: DEMENTIA ALZHEIMER'S TYPE
     Dosage: 4.6 MG/24 HR
     Route: 062
     Dates: start: 20100901, end: 20110801
  5. EXELON [Suspect]
     Dosage: 9.5 MG/24 HR
     Route: 062
     Dates: end: 20110801
  6. CITALOPRAM HYDROBROMIDE [Concomitant]
     Dosage: 20 MG, DAILY
     Route: 048

REACTIONS (6)
  - OVERDOSE [None]
  - EXTRAPYRAMIDAL DISORDER [None]
  - DISORIENTATION [None]
  - WRONG TECHNIQUE IN DRUG USAGE PROCESS [None]
  - DEATH [None]
  - FATIGUE [None]
